FAERS Safety Report 9902928 (Version 2)
Quarter: 2014Q1

REPORT INFORMATION
  Report Type: Spontaneous
  Country: US (occurrence: US)
  Receive Date: 20140217
  Receipt Date: 20140221
  Transmission Date: 20141002
  Serious: Yes (Death, Hospitalization, Other)
  Sender: FDA-Public Use
  Company Number: PHEH2014US002933

PATIENT
  Age: 35 Year
  Sex: Male
  Weight: 104.8 kg

DRUGS (3)
  1. GLEEVEC [Suspect]
     Indication: GASTROINTESTINAL STROMAL TUMOUR
     Dosage: UNK UKN, UNK
     Dates: start: 2006, end: 2012
  2. GLEEVEC [Suspect]
     Dosage: 800 MG, DAILY
     Route: 048
     Dates: start: 2013
  3. HEPARIN [Concomitant]
     Dosage: UNK UKN, UNK
     Dates: start: 2006, end: 2008

REACTIONS (13)
  - Death [Fatal]
  - Brain death [Fatal]
  - Fall [Unknown]
  - Dysphagia [Recovering/Resolving]
  - Chest pain [Unknown]
  - Scar [Unknown]
  - Hepatic failure [Unknown]
  - Gastrointestinal stromal tumour [Unknown]
  - Malignant neoplasm progression [Unknown]
  - Weight decreased [Unknown]
  - Metastasis [Unknown]
  - Pulseless electrical activity [Unknown]
  - Brain injury [Unknown]
